FAERS Safety Report 26098189 (Version 2)
Quarter: 2025Q4

REPORT INFORMATION
  Report Type: Spontaneous
  Country: US (occurrence: US)
  Receive Date: 20251127
  Receipt Date: 20251204
  Transmission Date: 20260118
  Serious: Yes (Other)
  Sender: BAUSCH AND LOMB
  Company Number: US-BAUSCH-BH-2025-020996

PATIENT
  Age: 85 Year
  Sex: Female

DRUGS (2)
  1. DEXAMETHASONE [Suspect]
     Active Substance: DEXAMETHASONE
     Indication: Immune effector cell-associated neurotoxicity syndrome
     Route: 065
  2. GLOFITAMAB [Concomitant]
     Active Substance: GLOFITAMAB
     Indication: Non-Hodgkin^s lymphoma

REACTIONS (1)
  - Ketoacidosis [Recovered/Resolved]
